FAERS Safety Report 4814101-7 (Version None)
Quarter: 2005Q4

REPORT INFORMATION
  Report Type: 
  Country: None (occurrence: None)
  Receive Date: 20051028
  Receipt Date: 20050628
  Transmission Date: 20060501
  Serious: No
  Sender: FDA-Public Use
  Company Number: US-GLAXOSMITHKLINE-A0564493A

PATIENT
  Age: 80 Year
  Sex: Female

DRUGS (7)
  1. ADVAIR DISKUS 100/50 [Suspect]
     Indication: ASTHMA
     Route: 055
     Dates: start: 20050601
  2. CARDIZEM [Concomitant]
  3. PREDNISONE [Concomitant]
  4. COUMADIN [Concomitant]
  5. NEXIUM [Concomitant]
  6. NASONEX [Concomitant]
  7. DIOVAN [Concomitant]

REACTIONS (1)
  - DYSPHONIA [None]
